FAERS Safety Report 18428341 (Version 1)
Quarter: 2020Q4

REPORT INFORMATION
  Report Type: Spontaneous
  Country: US (occurrence: US)
  Receive Date: 20201026
  Receipt Date: 20201026
  Transmission Date: 20210114
  Serious: Yes (Other)
  Sender: FDA-Public Use
  Company Number: US-INCYTE CORPORATION-2020IN009768

PATIENT

DRUGS (1)
  1. JAKAFI [Suspect]
     Active Substance: RUXOLITINIB
     Indication: POLYCYTHAEMIA VERA
     Dosage: 10MG QAM, 5MG QPM
     Route: 048
     Dates: start: 20191002

REACTIONS (3)
  - Illness [Unknown]
  - Influenza like illness [Unknown]
  - Haemoglobin decreased [Unknown]

NARRATIVE: CASE EVENT DATE: 202002
